FAERS Safety Report 4735644-0 (Version None)
Quarter: 2005Q3

REPORT INFORMATION
  Report Type: 
  Country: None (occurrence: None)
  Receive Date: 20050805
  Receipt Date: 20050728
  Transmission Date: 20060218
  Serious: Yes (Other)
  Sender: FDA-Public Use
  Company Number: GB-GLAXOSMITHKLINE-B0389226A

PATIENT
  Sex: Female

DRUGS (3)
  1. LAMICTAL [Suspect]
     Route: 048
  2. ORAL CONTRACEPTIVE [Concomitant]
  3. EPILIM [Concomitant]

REACTIONS (2)
  - DRUG EXPOSURE DURING PREGNANCY [None]
  - UNINTENDED PREGNANCY [None]
